FAERS Safety Report 4601424-X (Version None)
Quarter: 2005Q1

REPORT INFORMATION
  Report Type: 
  Country: None (occurrence: None)
  Receive Date: 20050203
  Receipt Date: 20040917
  Transmission Date: 20050727
  Serious: Yes (Other)
  Sender: FDA-Public Use
  Company Number: PHEH2004US09321

PATIENT
  Age: 11 Year
  Sex: Male

DRUGS (3)
  1. RITALIN LA [Suspect]
     Indication: ATTENTION DEFICIT/HYPERACTIVITY DISORDER
     Dosage: 20 MG, QD, ORAL
     Route: 048
     Dates: start: 20040730, end: 20040822
  2. DEPAKOTE [Concomitant]
  3. KLONOPIN [Concomitant]

REACTIONS (2)
  - CONVULSION [None]
  - PETIT MAL EPILEPSY [None]
